FAERS Safety Report 10512264 (Version 1)
Quarter: 2014Q4

REPORT INFORMATION
  Report Type: Spontaneous
  Country: IT (occurrence: IT)
  Receive Date: 20141010
  Receipt Date: 20141010
  Transmission Date: 20150528
  Serious: Yes (Other)
  Sender: FDA-Public Use
  Company Number: IT-ABBVIE-14P-083-1294302-00

PATIENT
  Age: 11 Year
  Sex: Female

DRUGS (3)
  1. FRISIUM [Concomitant]
     Active Substance: CLOBAZAM
     Indication: PRODUCT USED FOR UNKNOWN INDICATION
  2. LAMICTAL [Suspect]
     Active Substance: LAMOTRIGINE
     Indication: INFANTILE SPASMS
     Route: 048
     Dates: start: 20140625, end: 20140923
  3. DEPAKINE CHRONO [Suspect]
     Active Substance: VALPROATE SODIUM
     Indication: INFANTILE SPASMS
     Route: 048
     Dates: start: 20140625, end: 20140923

REACTIONS (1)
  - Hyperammonaemic crisis [Unknown]

NARRATIVE: CASE EVENT DATE: 20140908
